FAERS Safety Report 6006056-7 (Version None)
Quarter: 2008Q4

REPORT INFORMATION
  Report Type: 
  Country: None (occurrence: None)
  Receive Date: 20081217
  Receipt Date: 20081204
  Transmission Date: 20090506
  Serious: Yes (Hospitalization)
  Sender: FDA-Public Use
  Company Number: US-BAYER-200840053NA

PATIENT
  Age: 62 Year
  Sex: Female
  Weight: 141 kg

DRUGS (11)
  1. SORAFENIB [Suspect]
     Indication: BREAST CANCER METASTATIC
     Dosage: TOTAL DAILY DOSE: 800 MG  UNIT DOSE: 200 MG
     Route: 048
     Dates: start: 20081121, end: 20081129
  2. ABRAXANE [Suspect]
     Indication: BREAST CANCER METASTATIC
     Dosage: TOTAL DAILY DOSE: 298 MG
     Route: 042
     Dates: start: 20081121, end: 20081121
  3. MOBIC [Concomitant]
     Indication: ARTHRITIS
     Dosage: TOTAL DAILY DOSE: 15 MG
     Route: 048
     Dates: start: 20050101
  4. HYDROCHLOROTHIAZIDE [Concomitant]
     Indication: HYPERTENSION
     Dosage: TOTAL DAILY DOSE: 12.5 MG
     Route: 048
     Dates: start: 20050101, end: 20081119
  5. HYDROCHLOROTHIAZIDE [Concomitant]
     Dosage: TOTAL DAILY DOSE: 25 MG
     Route: 048
     Dates: start: 20081119
  6. VISTARIL [Concomitant]
     Indication: PRURITUS
     Route: 048
     Dates: start: 20081101
  7. LORTAB [Concomitant]
     Indication: PAIN
     Route: 048
     Dates: start: 20070101
  8. MULTI-VITAMIN [Concomitant]
     Indication: SUPPLEMENTATION THERAPY
     Dosage: TOTAL DAILY DOSE: 1 DF
     Route: 048
     Dates: start: 20081101
  9. CALCIUM + VIT D [Concomitant]
     Indication: SUPPLEMENTATION THERAPY
     Dosage: TOTAL DAILY DOSE: 1 DF
     Dates: start: 20081101
  10. FLEXERIL [Concomitant]
     Indication: ARTHRITIS
     Route: 048
     Dates: start: 20070101
  11. LISINOPRIL [Concomitant]
     Indication: HYPERTENSION
     Dosage: TOTAL DAILY DOSE: 10 MG
     Route: 048
     Dates: start: 20081119

REACTIONS (2)
  - DEHYDRATION [None]
  - RENAL FAILURE [None]
